FAERS Safety Report 8560129-3 (Version None)
Quarter: 2012Q2

REPORT INFORMATION
  Report Type: 
  Country: None (occurrence: None)
  Receive Date: 20120418
  Receipt Date: 20110321
  Transmission Date: 20120825
  Serious: Yes (Other)
  Sender: FDA-Public Use
  Company Number: PHHY2011US23365

PATIENT
  Age: 50 Year
  Sex: Female

DRUGS (1)
  1. DIOVAN [Suspect]

REACTIONS (3)
  - BLOOD PRESSURE INCREASED [None]
  - SOMNOLENCE [None]
  - FATIGUE [None]
